FAERS Safety Report 9733028 (Version 1)
Quarter: 2013Q4

REPORT INFORMATION
  Report Type: Spontaneous
  Country: US (occurrence: US)
  Receive Date: 20131204
  Receipt Date: 20131204
  Transmission Date: 20140711
  Serious: No
  Sender: FDA-Public Use
  Company Number: US-GILEAD-2009-0021960

PATIENT
  Sex: Female
  Weight: 56.7 kg

DRUGS (8)
  1. LETAIRIS [Suspect]
     Indication: PULMONARY ARTERIAL HYPERTENSION
     Route: 048
     Dates: start: 20080111
  2. COUMADIN [Concomitant]
  3. DIGOXIN [Concomitant]
  4. ZANTAC [Concomitant]
  5. LEVSIN [Concomitant]
  6. VALIUM [Concomitant]
  7. CALCIUM [Concomitant]
  8. MULTIVITAMIN [Concomitant]

REACTIONS (5)
  - Palpitations [Unknown]
  - Throat irritation [Unknown]
  - Hot flush [Unknown]
  - Abdominal pain [Unknown]
  - Constipation [Unknown]
